FAERS Safety Report 5267563-8 (Version None)
Quarter: 2007Q1

REPORT INFORMATION
  Report Type: 
  Country: None (occurrence: None)
  Receive Date: 20070316
  Receipt Date: 20070308
  Transmission Date: 20070707
  Serious: Yes (Disabling)
  Sender: FDA-Public Use
  Company Number: FR-ABBOTT-07P-056-0361524-00

PATIENT
  Age: 55 Year
  Sex: Male

DRUGS (1)
  1. SEVORANE LIQUID FOR INHALATION [Suspect]
     Indication: DRUG USE FOR UNKNOWN INDICATION
     Route: 055

REACTIONS (2)
  - ACCIDENTAL EXPOSURE [None]
  - PYRAMIDAL TRACT SYNDROME [None]
